FAERS Safety Report 6666592-7 (Version None)
Quarter: 2010Q2

REPORT INFORMATION
  Report Type: 
  Country: None (occurrence: None)
  Receive Date: 20100404
  Receipt Date: 20100113
  Transmission Date: 20101027
  Serious: No
  Sender: FDA-Public Use
  Company Number: US-ALLERGAN-1000464US

PATIENT
  Age: 81 Year
  Sex: Male

DRUGS (16)
  1. ZYMAR [Suspect]
     Indication: POSTOPERATIVE CARE
     Dosage: UNK
     Route: 047
     Dates: start: 20091011
  2. ZYMAR [Suspect]
     Dosage: UNK
     Route: 047
     Dates: start: 20091021
  3. PRED FORTE [Suspect]
     Indication: POSTOPERATIVE CARE
     Dosage: UNK
     Route: 047
     Dates: start: 20091011
  4. PRED FORTE [Suspect]
     Dosage: UNK
     Route: 047
     Dates: start: 20091021
  5. XIBROM [Suspect]
     Indication: POSTOPERATIVE CARE
     Dosage: UNK
     Route: 047
     Dates: start: 20091011
  6. XIBROM [Suspect]
     Dosage: UNK
     Route: 047
     Dates: start: 20091021
  7. METOPROLOL [Concomitant]
     Indication: ATRIAL FIBRILLATION
     Dosage: 25 MG, QD
     Dates: start: 20040101
  8. WARFARIN SODIUM [Concomitant]
     Indication: ATRIAL FIBRILLATION
     Dosage: 7.5 MG, QD
     Dates: start: 20080101
  9. SIMVASTATIN [Concomitant]
     Indication: BLOOD CHOLESTEROL INCREASED
     Dosage: 40 MG, QD
     Dates: start: 20040101
  10. OMEPRAZOLE [Concomitant]
     Indication: GASTROOESOPHAGEAL REFLUX DISEASE
     Dosage: 20 MG, QD
     Dates: start: 20050101
  11. LISINOPRIL [Concomitant]
     Indication: HYPERTENSION
     Dosage: 2.5 MG, QD
     Dates: start: 20040101
  12. ASPIRIN [Concomitant]
     Indication: CORONARY ARTERY BYPASS
     Dosage: 81 MG, QD
     Dates: start: 20040101
  13. DIAZEPAM [Concomitant]
     Dosage: 5 MG, PRN
     Dates: start: 20040101
  14. VITAMIN D [Concomitant]
     Indication: SUPPLEMENTATION THERAPY
     Dosage: 100 IU, UNK
     Dates: start: 20090101
  15. CALCIUM [Concomitant]
     Indication: SUPPLEMENTATION THERAPY
     Dosage: UNK
     Dates: start: 20090101
  16. LORATADINE [Concomitant]
     Indication: RHINITIS ALLERGIC
     Dosage: UNK
     Dates: start: 20090101

REACTIONS (3)
  - PARAESTHESIA [None]
  - PRURITUS GENERALISED [None]
  - RASH GENERALISED [None]
